FAERS Safety Report 8491816-3 (Version None)
Quarter: 2012Q3

REPORT INFORMATION
  Report Type: 
  Country: None (occurrence: None)
  Receive Date: 20120706
  Receipt Date: 20120625
  Transmission Date: 20120928
  Serious: Yes (Other)
  Sender: FDA-Public Use
  Company Number: US-JNJFOC-20120604172

PATIENT
  Sex: Female

DRUGS (11)
  1. VITAMIN D [Concomitant]
     Indication: VITAMIN SUPPLEMENTATION
     Route: 065
  2. CALCIUM [Concomitant]
  3. PREDNISONE TAB [Concomitant]
     Route: 065
     Dates: start: 20060101
  4. FISH OIL [Concomitant]
     Dates: start: 20090101
  5. PREDNISONE TAB [Concomitant]
     Indication: TEMPORAL ARTERITIS
     Route: 065
     Dates: start: 20060101
  6. FOSAMAX [Concomitant]
     Indication: OSTEOPOROSIS
     Route: 065
     Dates: start: 20010101
  7. EXTRA STRENGTH TYLENOL [Suspect]
     Route: 048
  8. EXTRA STRENGTH TYLENOL [Suspect]
     Indication: TEMPORAL ARTERITIS
     Dosage: STARTED IN FALL OF 2006, STOPPED EITHER LATE 2011 OR EARLY 2012
     Route: 048
     Dates: start: 20060101
  9. TYLENOL (CAPLET) [Suspect]
     Indication: PAIN
     Dosage: 2 CAPLETS EVERY 4-6 HOURS AS NEEDED
     Route: 048
  10. TYLENOL (CAPLET) [Suspect]
     Indication: TEMPORAL ARTERITIS
     Dosage: 2 CAPLETS EVERY 4-6 HOURS AS NEEDED
     Route: 048
  11. PROLIA [Concomitant]
     Indication: OSTEOPOROSIS
     Route: 065
     Dates: start: 20120228

REACTIONS (4)
  - DIVERTICULITIS [None]
  - UTERINE MASS [None]
  - ABDOMINAL PAIN UPPER [None]
  - INTENTIONAL DRUG MISUSE [None]
